FAERS Safety Report 7057756-1 (Version None)
Quarter: 2010Q4

REPORT INFORMATION
  Report Type: 
  Country: None (occurrence: None)
  Receive Date: 20101022
  Receipt Date: 20101008
  Transmission Date: 20110411
  Serious: Yes (Other)
  Sender: FDA-Public Use
  Company Number: EC-PFIZER INC-2010129500

PATIENT
  Age: 52 Year
  Sex: Male

DRUGS (2)
  1. LYRICA [Suspect]
     Indication: HERNIA PAIN
     Dosage: 75 MG, 2X/DAY
     Route: 048
     Dates: start: 20100920
  2. LYRICA [Suspect]
     Dosage: 75MG AT MORNING AND 150MG AT NIGHT
     Dates: end: 20101004

REACTIONS (2)
  - ASTHMA [None]
  - HYPERSENSITIVITY [None]
